FAERS Safety Report 4402349-5 (Version None)
Quarter: 2004Q3

REPORT INFORMATION
  Report Type: 
  Country: None (occurrence: None)
  Receive Date: 20040720
  Receipt Date: 20040517
  Transmission Date: 20050211
  Serious: Yes (Death, Hospitalization)
  Sender: FDA-Public Use
  Company Number: PHHO2004AT07039

PATIENT
  Age: 80 Year
  Sex: Female

DRUGS (6)
  1. ZOLEDRONATE [Suspect]
     Indication: MULTIPLE MYELOMA
     Dosage: 4 MG
     Route: 042
     Dates: start: 20040504
  2. THALIDOMIDE [Suspect]
     Route: 042
     Dates: start: 20040504
  3. DEXAMETHASONE [Suspect]
     Route: 042
     Dates: start: 20040504
  4. ASPIRIN [Concomitant]
     Indication: THROMBOSIS PROPHYLAXIS
     Dosage: 100 MG, UNK
     Route: 048
  5. ISOSORBIDE MONONITRATE [Concomitant]
     Indication: CORONARY ARTERY DISEASE
     Dosage: 40 MG, UNK
     Route: 048
  6. PANTOPRAZOLE SODIUM [Concomitant]
     Indication: PROPHYLAXIS
     Dosage: 40 MG, QD
     Route: 048
     Dates: start: 20040504

REACTIONS (7)
  - ASTHENIA [None]
  - BLOOD CREATININE INCREASED [None]
  - CARDIAC FAILURE [None]
  - HYPERTENSIVE CRISIS [None]
  - MALIGNANT NEOPLASM PROGRESSION [None]
  - PULMONARY CONGESTION [None]
  - RENAL FAILURE ACUTE [None]
